FAERS Safety Report 7324054-8 (Version None)
Quarter: 2011Q1

REPORT INFORMATION
  Report Type: 
  Country: None (occurrence: None)
  Receive Date: 20110301
  Receipt Date: 20110225
  Transmission Date: 20110831
  Serious: Yes (Life-Threatening)
  Sender: FDA-Public Use
  Company Number: JP-ASTRAZENECA-2010SE50338

PATIENT
  Age: 87 Year
  Sex: Male
  Weight: 50 kg

DRUGS (14)
  1. OMEPRAL [Concomitant]
     Indication: REFLUX OESOPHAGITIS
     Route: 048
  2. BLADDERON [Concomitant]
     Indication: NEUROGENIC BLADDER
     Route: 048
  3. MIKELAN LA [Concomitant]
     Route: 047
  4. ODYNE [Concomitant]
     Indication: PROSTATE CANCER
     Route: 048
     Dates: start: 20100313
  5. POLLAKISU [Concomitant]
     Indication: NEUROGENIC BLADDER
     Route: 048
  6. ALDACTONE [Concomitant]
     Indication: HYPERTENSION
     Route: 048
  7. ALOSENN [Concomitant]
     Indication: CONSTIPATION
     Route: 048
  8. AZ [Concomitant]
     Route: 047
  9. ZOLADEX [Suspect]
     Indication: PROSTATE CANCER
     Route: 058
     Dates: start: 19980722, end: 20101023
  10. WARFARIN [Suspect]
     Indication: CARDIAC VALVE DISEASE
     Route: 048
     Dates: end: 20101023
  11. LASIX [Concomitant]
     Indication: CARDIAC FAILURE
     Route: 048
  12. HARNAL D [Concomitant]
     Indication: BENIGN PROSTATIC HYPERPLASIA
     Route: 048
  13. ITOROL [Concomitant]
     Indication: CARDIAC FAILURE
     Route: 048
  14. BUP-4 [Concomitant]
     Route: 048

REACTIONS (1)
  - INJECTION SITE HAEMORRHAGE [None]
